FAERS Safety Report 6988392-0 (Version None)
Quarter: 2010Q3

REPORT INFORMATION
  Report Type: 
  Country: None (occurrence: None)
  Receive Date: 20100916
  Receipt Date: 20100908
  Transmission Date: 20110219
  Serious: Yes (Other)
  Sender: FDA-Public Use
  Company Number: DE-WYE-H17401310

PATIENT
  Sex: Male
  Weight: 78 kg

DRUGS (5)
  1. RAPAMUNE [Suspect]
     Indication: PROPHYLAXIS AGAINST TRANSPLANT REJECTION
     Route: 048
     Dates: start: 20080229
  2. PANTOPRAZOLE SODIUM [Concomitant]
     Indication: PROPHYLAXIS AGAINST GASTROINTESTINAL ULCER
     Route: 065
     Dates: start: 20080201
  3. IDEOS [Concomitant]
     Indication: OSTEOPOROSIS PROPHYLAXIS
     Dosage: 1 CHEWING TABLET PER DAY
     Route: 048
     Dates: start: 20080201
  4. ADVAGRAF [Suspect]
     Indication: IMMUNOSUPPRESSANT DRUG THERAPY
     Route: 065
     Dates: start: 20080201
  5. PRAVASTATIN SODIUM [Concomitant]
     Indication: LIPIDS INCREASED
     Route: 065
     Dates: start: 20080502

REACTIONS (1)
  - PROSTATE CANCER [None]
